FAERS Safety Report 11999989 (Version 1)
Quarter: 2016Q1

REPORT INFORMATION
  Report Type: Spontaneous
  Country: CA (occurrence: CA)
  Receive Date: 20160204
  Receipt Date: 20160204
  Transmission Date: 20160526
  Serious: Yes (Other)
  Sender: FDA-Public Use
  Company Number: CA-NOVOPROD-478443

PATIENT
  Sex: Female
  Weight: 45 kg

DRUGS (10)
  1. FEIBA NF [Suspect]
     Active Substance: ANTI-INHIBITOR COAGULANT COMPLEX
     Indication: OFF LABEL USE
     Dosage: UNK
     Route: 042
  2. FEIBA NF [Suspect]
     Active Substance: ANTI-INHIBITOR COAGULANT COMPLEX
     Indication: ACQUIRED HAEMOPHILIA
  3. FACTOR VIII RECOMBINANT [Suspect]
     Active Substance: ANTIHEMOPHILIC FACTOR, HUMAN RECOMBINANT
     Indication: PRODUCT USED FOR UNKNOWN INDICATION
     Dosage: UNK
     Route: 042
  4. ANTIHEMOPHILIC FACTOR              /00286701/ [Suspect]
     Active Substance: ANTIHEMOPHILIC FACTOR HUMAN
     Indication: FACTOR VIII INHIBITION
  5. NIASTASE RT [Suspect]
     Active Substance: COAGULATION FACTOR VIIA RECOMBINANT HUMAN
     Indication: INTRA-ABDOMINAL HAEMORRHAGE
  6. ANTIHEMOPHILIC FACTOR              /00286701/ [Suspect]
     Active Substance: ANTIHEMOPHILIC FACTOR HUMAN
     Indication: INTRA-ABDOMINAL HAEMORRHAGE
     Dosage: 5000 U
     Route: 042
  7. FEIBA NF [Suspect]
     Active Substance: ANTI-INHIBITOR COAGULANT COMPLEX
     Indication: INTRA-ABDOMINAL HAEMORRHAGE
  8. PROTHROMBIN COMPLEX [Suspect]
     Active Substance: COAGULATION FACTOR IX HUMAN\COAGULATION FACTOR VII HUMAN\COAGULATION FACTOR X HUMAN\PROTEIN C\PROTEIN S HUMAN\PROTHROMBIN
     Indication: PRODUCT USED FOR UNKNOWN INDICATION
     Dosage: UNK
     Route: 065
  9. NIASTASE RT [Suspect]
     Active Substance: COAGULATION FACTOR VIIA RECOMBINANT HUMAN
     Indication: ACQUIRED HAEMOPHILIA
     Dosage: UNK
     Route: 042
  10. ANTIHEMOPHILIC FACTOR /00286701/ [Suspect]
     Active Substance: ANTIHEMOPHILIC FACTOR HUMAN
     Indication: GASTROINTESTINAL HAEMORRHAGE

REACTIONS (4)
  - Therapy responder [Unknown]
  - Inhibiting antibodies [Unknown]
  - Haemorrhage [Unknown]
  - Drug effect decreased [Unknown]
